FAERS Safety Report 9559256 (Version 1)
Quarter: 2013Q3

REPORT INFORMATION
  Report Type: Report from Study
  Country: DE (occurrence: DE)
  Receive Date: 20130927
  Receipt Date: 20130927
  Transmission Date: 20140515
  Serious: No
  Sender: FDA-Public Use
  Company Number: PHHY2013DE105071

PATIENT
  Sex: Female

DRUGS (5)
  1. AMN107 [Suspect]
     Indication: CHRONIC MYELOID LEUKAEMIA
     Dosage: 600 MG, PER DAY
     Route: 048
     Dates: start: 20110905
  2. PREDNISOLON [Concomitant]
     Dosage: UNK
     Dates: start: 201005
  3. ALLOPURINOL [Concomitant]
     Dosage: UNK
     Dates: start: 20110822
  4. AMOXICILLIN [Concomitant]
     Dosage: UNK
     Dates: start: 20120821, end: 20120924
  5. CEFUROXIN [Concomitant]
     Dosage: UNK
     Dates: start: 20121217, end: 20130115

REACTIONS (2)
  - Pulpitis dental [Recovered/Resolved]
  - Nasopharyngitis [Recovered/Resolved]
